FAERS Safety Report 9018571 (Version 2)
Quarter: 2013Q1

REPORT INFORMATION
  Report Type: Spontaneous
  Country: US (occurrence: US)
  Receive Date: 20130118
  Receipt Date: 20130311
  Transmission Date: 20140127
  Serious: Yes (Other)
  Sender: FDA-Public Use
  Company Number: US-PFIZER INC-2013020303

PATIENT
  Age: 30 Year
  Sex: Female

DRUGS (5)
  1. PRISTIQ [Suspect]
     Indication: GENERALISED ANXIETY DISORDER
     Dosage: 50 MG, 1X/DAY
     Route: 048
     Dates: start: 20120827, end: 20120930
  2. PRISTIQ [Suspect]
     Indication: OBSESSIVE-COMPULSIVE DISORDER
     Dosage: 50 MG, ALTERNATE DAY
     Route: 048
     Dates: start: 20121001, end: 201210
  3. PRISTIQ [Suspect]
     Indication: DEPRESSION
     Dosage: 50 MG, 1X/DAY
     Route: 048
     Dates: start: 201210, end: 20121230
  4. LISDEXAMFETAMINE DIMESYLATE [Concomitant]
     Dosage: 50 MG, 1X/DAY
     Dates: start: 20111227, end: 20130114
  5. LISDEXAMFETAMINE DIMESYLATE [Concomitant]
     Dosage: 60 MG, 1X/DAY
     Dates: start: 20130115

REACTIONS (4)
  - Cardiac flutter [Recovered/Resolved]
  - Drug ineffective [Unknown]
  - Drug ineffective for unapproved indication [Unknown]
  - Off label use [Recovered/Resolved]
